FAERS Safety Report 24986505 (Version 1)
Quarter: 2025Q1

REPORT INFORMATION
  Report Type: Report from Study
  Country: US (occurrence: US)
  Receive Date: 20250219
  Receipt Date: 20250219
  Transmission Date: 20250409
  Serious: Yes (Hospitalization, Other)
  Sender: GLAXOSMITHKLINE
  Company Number: US-GSK-US2025AMR017917

PATIENT

DRUGS (4)
  1. ALBUTEROL SULFATE [Suspect]
     Active Substance: ALBUTEROL SULFATE
     Indication: Product used for unknown indication
  2. ALBUTEROL SULFATE [Suspect]
     Active Substance: ALBUTEROL SULFATE
     Indication: Product used for unknown indication
  3. FLUTICASONE FUROATE [Suspect]
     Active Substance: FLUTICASONE FUROATE
     Indication: Product used for unknown indication
  4. MILLIPRED [Suspect]
     Active Substance: PREDNISOLONE
     Indication: Asthma

REACTIONS (10)
  - Respiratory disorder [Unknown]
  - Surgery [Recovering/Resolving]
  - Depression [Not Recovered/Not Resolved]
  - Rhinitis [Unknown]
  - Upper-airway cough syndrome [Unknown]
  - Eye pruritus [Unknown]
  - Dry eye [Unknown]
  - Ear pain [Unknown]
  - Dry mouth [Unknown]
  - Haemoptysis [Unknown]
